FAERS Safety Report 7762459 (Version 5)
Quarter: 2013Q3

REPORT INFORMATION
  Report Type: Spontaneous
  Country: US (occurrence: US)
  Receive Date: 20110117
  Receipt Date: 20130828
  Transmission Date: 20140515
  Serious: Yes (Death, Hospitalization)
  Sender: FDA-Public Use
  Company Number: US-JNJFOC-20110102078

PATIENT
  Age: 30 Year
  Sex: Male
  Weight: 71.22 kg

DRUGS (3)
  1. REMICADE [Suspect]
     Indication: COLITIS ULCERATIVE
     Dosage: APPROXIMATELY 30 INFUSIONS RECEIVED.
     Route: 042
     Dates: start: 20060108, end: 20101027
  2. PAXIL [Concomitant]
     Indication: ANXIETY
     Route: 065
  3. AZATHIOPRINE [Concomitant]
     Indication: COLITIS ULCERATIVE
     Route: 048
     Dates: end: 200510

REACTIONS (2)
  - Neuroendocrine tumour [Fatal]
  - Infusion related reaction [Unknown]
